FAERS Safety Report 19453708 (Version 1)
Quarter: 2021Q2

REPORT INFORMATION
  Report Type: Spontaneous
  Country: JP (occurrence: JP)
  Receive Date: 20210623
  Receipt Date: 20210623
  Transmission Date: 20210717
  Serious: Yes (Life-Threatening, Other)
  Sender: FDA-Public Use
  Company Number: JP-PFIZER INC-2021679344

PATIENT
  Sex: Female

DRUGS (3)
  1. IBRANCE [Suspect]
     Active Substance: PALBOCICLIB
     Indication: METASTASES TO LYMPH NODES
     Dosage: 125 MG, CYCLIC
     Route: 048
     Dates: start: 201802
  2. IBRANCE [Suspect]
     Active Substance: PALBOCICLIB
     Dosage: 50 MG, CYCLIC ( DAILY 2 WEEKS ON AND 2 WEEKS OFF)
     Route: 048
     Dates: start: 201809
  3. ANASTROZOLE. [Suspect]
     Active Substance: ANASTROZOLE
     Indication: METASTASES TO LYMPH NODES
     Dosage: UNK
     Dates: start: 201802

REACTIONS (5)
  - Platelet count decreased [Not Recovered/Not Resolved]
  - Febrile neutropenia [Unknown]
  - White blood cell count decreased [Unknown]
  - Aplastic anaemia [Unknown]
  - Haemoglobin decreased [Unknown]

NARRATIVE: CASE EVENT DATE: 20180901
